FAERS Safety Report 7909974-5 (Version None)
Quarter: 2011Q4

REPORT INFORMATION
  Report Type: 
  Country: None (occurrence: None)
  Receive Date: 20111111
  Receipt Date: 20111107
  Transmission Date: 20120403
  Serious: Yes (Death)
  Sender: FDA-Public Use
  Company Number: JP-CELGENEUS-087-50794-11111109

PATIENT
  Sex: Male
  Weight: 52 kg

DRUGS (16)
  1. AMOBAN [Concomitant]
     Dosage: 7.5 MILLIGRAM
     Route: 048
     Dates: start: 20110315
  2. BLOSTAR [Concomitant]
     Dosage: 40 MILLIGRAM
     Route: 048
     Dates: end: 20110101
  3. AMIKACIN SULFATE [Concomitant]
     Dosage: 400 MILLIGRAM
     Route: 048
     Dates: end: 20110929
  4. MAXIPIME [Concomitant]
     Dosage: 4 GRAM
     Route: 041
     Dates: end: 20110101
  5. VIDAZA [Suspect]
     Dosage: 25 MILLIGRAM/SQ. METER
     Route: 041
     Dates: start: 20110920, end: 20110926
  6. KYTRIL [Concomitant]
     Dosage: 3 MILLIGRAM
     Route: 041
     Dates: end: 20110926
  7. VIDAZA [Suspect]
     Dosage: 37.5 MILLIGRAM/SQ. METER
     Route: 041
     Dates: start: 20110802, end: 20110808
  8. DIFLUCAN [Concomitant]
     Dosage: 100 MILLIGRAM
     Route: 048
     Dates: end: 20110101
  9. AMIKACIN SULFATE [Concomitant]
     Dosage: 400 MILLIGRAM
     Route: 048
     Dates: start: 20111001, end: 20110101
  10. BLOSTAR [Concomitant]
     Dosage: 40 MILLIGRAM
     Route: 048
     Dates: start: 20110519
  11. DIFLUCAN [Concomitant]
     Dosage: 100 MILLIGRAM
     Route: 048
     Dates: start: 20110713
  12. CEFTAZIDIME SODIUM [Concomitant]
     Dosage: 4 GRAM
     Route: 041
     Dates: end: 20111004
  13. ZOSYN [Concomitant]
     Dosage: 13.5 GRAM
     Route: 041
     Dates: end: 20111019
  14. OMEGACIN [Concomitant]
     Dosage: .3 GRAM
     Route: 041
     Dates: end: 20110101
  15. ANTIBIOTICS [Concomitant]
     Dosage: 3 MILLIGRAM
     Route: 041
     Dates: end: 20110926
  16. VIDAZA [Suspect]
     Indication: MYELODYSPLASTIC SYNDROME
     Dosage: 75 MILLIGRAM/SQ. METER
     Route: 041
     Dates: start: 20110614, end: 20110620

REACTIONS (2)
  - LUNG ABSCESS [None]
  - LIVER ABSCESS [None]
